FAERS Safety Report 8390835-5 (Version None)
Quarter: 2012Q2

REPORT INFORMATION
  Report Type: 
  Country: None (occurrence: None)
  Receive Date: 20120529
  Receipt Date: 20120521
  Transmission Date: 20120825
  Serious: Yes (Death, Hospitalization, Other)
  Sender: FDA-Public Use
  Company Number: JP-ASTELLAS-2012US004999

PATIENT
  Sex: Female
  Weight: 43 kg

DRUGS (12)
  1. BROTIZOLAM [Concomitant]
     Indication: INSOMNIA
     Dosage: UNK
     Route: 065
     Dates: start: 20120319
  2. FURSULTIAMINE HYDROCHLORIDE [Concomitant]
     Indication: DECREASED APPETITE
     Dosage: UNK
     Route: 065
     Dates: start: 20120210, end: 20120319
  3. VIDARABINE [Concomitant]
     Indication: HERPES ZOSTER
     Dosage: UNK
     Route: 065
     Dates: start: 20120224, end: 20120302
  4. ERLOTINIB HYDROCHLORIDE [Suspect]
     Indication: NON-SMALL CELL LUNG CANCER
     Dosage: UNK
     Route: 048
     Dates: start: 20120127, end: 20120312
  5. ERLOTINIB HYDROCHLORIDE [Suspect]
     Dosage: UNK
     Route: 048
     Dates: start: 20120411
  6. LANSOPRAZOLE [Concomitant]
     Indication: PROPHYLAXIS
     Dosage: UNK
     Route: 065
     Dates: start: 20110812, end: 20120319
  7. LOXONIN [Concomitant]
     Indication: CANCER PAIN
     Dosage: UNK
     Route: 065
     Dates: start: 20110801, end: 20120319
  8. FLAVERIC [Concomitant]
     Indication: COUGH
     Dosage: UNK
     Route: 065
     Dates: start: 20120127, end: 20120319
  9. MAGMITT [Concomitant]
     Indication: CONSTIPATION
     Dosage: UNK
     Route: 065
     Dates: start: 20120318, end: 20120309
  10. HERBAL EXTRACT [Concomitant]
     Indication: DECREASED APPETITE
     Dosage: UNK
     Route: 065
     Dates: start: 20120127, end: 20120319
  11. MEDICON [Concomitant]
     Indication: COUGH
     Dosage: UNK
     Route: 065
  12. VALACICLOVIR [Concomitant]
     Indication: HERPES ZOSTER
     Dosage: UNK
     Route: 065
     Dates: start: 20120224, end: 20120302

REACTIONS (6)
  - DECREASED APPETITE [None]
  - DIARRHOEA [None]
  - MALIGNANT ASCITES [None]
  - MELAENA [None]
  - NEOPLASM MALIGNANT [None]
  - ANAEMIA [None]
